FAERS Safety Report 19053256 (Version 1)
Quarter: 2021Q1

REPORT INFORMATION
  Report Type: Spontaneous
  Country: US (occurrence: US)
  Receive Date: 20210324
  Receipt Date: 20210324
  Transmission Date: 20210420
  Serious: Yes (Hospitalization, Other)
  Sender: FDA-Public Use
  Company Number: US-PURDUE-USA-2020-0161275

PATIENT
  Sex: Female

DRUGS (1)
  1. OXYCONTIN [Suspect]
     Active Substance: OXYCODONE HYDROCHLORIDE
     Indication: EXPOSURE DURING PREGNANCY
     Dosage: UNKNOWN
     Route: 048

REACTIONS (6)
  - Proteinuria [Unknown]
  - Headache [Unknown]
  - Visual impairment [Unknown]
  - Exposure during pregnancy [Unknown]
  - Labour pain [Unknown]
  - Pre-eclampsia [Unknown]
